FAERS Safety Report 24442397 (Version 5)
Quarter: 2025Q4

REPORT INFORMATION
  Report Type: Spontaneous
  Country: US (occurrence: US)
  Receive Date: 20241016
  Receipt Date: 20251115
  Transmission Date: 20260118
  Serious: No
  Sender: ROCHE
  Company Number: US-ROCHE-3548076

PATIENT
  Age: 14 Year
  Sex: Male
  Weight: 61.23 kg

DRUGS (5)
  1. HEMLIBRA [Suspect]
     Active Substance: EMICIZUMAB-KXWH
     Indication: Factor VIII deficiency
     Dosage: STRENGTH- 60 MG/0.4ML?ONGOING YES
     Route: 058
     Dates: start: 202404
  2. HEMLIBRA [Suspect]
     Active Substance: EMICIZUMAB-KXWH
     Dosage: STRENGTH- 60 MG/0.4ML?ONGOING YES
     Route: 058
     Dates: start: 202304
  3. HEMLIBRA [Suspect]
     Active Substance: EMICIZUMAB-KXWH
     Dosage: STRENGTH: 105 MG/0.7 ML
     Route: 058
     Dates: start: 202304
  4. HEMLIBRA [Suspect]
     Active Substance: EMICIZUMAB-KXWH
     Dosage: THE LOADING DOSE WAS GIVEN FOR 4 WEEKS; THEN ONCE EVERY 2 WEEKS AFTER THIS FOR THE SUBSEQUENT DOSING
     Route: 065
     Dates: start: 202007
  5. KOVALTRY [Concomitant]
     Active Substance: ANTIHEMOPHILIC FACTOR, HUMAN RECOMBINANT
     Dates: start: 202503

REACTIONS (3)
  - Haemorrhage [Not Recovered/Not Resolved]
  - Weight increased [Unknown]
  - Haemorrhage [Unknown]

NARRATIVE: CASE EVENT DATE: 20240415
